FAERS Safety Report 24071224 (Version 3)
Quarter: 2024Q3

REPORT INFORMATION
  Report Type: Report from Study
  Country: UY (occurrence: UY)
  Receive Date: 20240710
  Receipt Date: 20240710
  Transmission Date: 20241016
  Serious: No
  Sender: ROCHE
  Company Number: UY-ROCHE-3475946

PATIENT
  Age: 8 Month
  Sex: Female

DRUGS (1)
  1. RISDIPLAM [Suspect]
     Active Substance: RISDIPLAM
     Indication: Spinal muscular atrophy
     Dosage: 1.76MG OF RISDIPLAM PER DAY, THAT IS THE EQUIVALENT TO 2.3ML OF DAILY MEDICATION, ADMINISTERED BY NA
     Route: 050
     Dates: start: 20231208

REACTIONS (1)
  - Dermatitis allergic [Recovered/Resolved]

NARRATIVE: CASE EVENT DATE: 20231211
